FAERS Safety Report 7457426-1 (Version None)
Quarter: 2011Q2

REPORT INFORMATION
  Report Type: 
  Country: None (occurrence: None)
  Receive Date: 20110504
  Receipt Date: 20110428
  Transmission Date: 20111010
  Serious: Yes (Other)
  Sender: FDA-Public Use
  Company Number: PHHY2011VE36820

PATIENT
  Sex: Female

DRUGS (12)
  1. BONIVA [Concomitant]
  2. NAPROSYN [Concomitant]
  3. IMOVANE [Concomitant]
  4. DIURIL [Concomitant]
  5. MAXAIR [Concomitant]
  6. ANTIDEPRESSANTS [Concomitant]
  7. ZOLEDRONIC ACID [Suspect]
     Indication: OSTEOPOROSIS
     Dosage: 5 MG,
     Route: 042
     Dates: start: 20080424
  8. EXELON [Concomitant]
  9. LIUBRAN [Concomitant]
  10. ELAVIL [Concomitant]
  11. OMEPRAZOLE [Concomitant]
  12. MICROSER [Concomitant]

REACTIONS (3)
  - BONE DISORDER [None]
  - TOOTHACHE [None]
  - BONE CYST [None]
